FAERS Safety Report 25853092 (Version 1)
Quarter: 2025Q3

REPORT INFORMATION
  Report Type: Spontaneous
  Country: US (occurrence: US)
  Receive Date: 20250926
  Receipt Date: 20250926
  Transmission Date: 20251020
  Serious: Yes (Other)
  Sender: ABBVIE
  Company Number: US-ABBVIE-6467700

PATIENT
  Sex: Female

DRUGS (2)
  1. CARBOXYMETHYLCELLULOSE SODIUM\GLYCERIN [Suspect]
     Active Substance: CARBOXYMETHYLCELLULOSE SODIUM\GLYCERIN
     Indication: Product used for unknown indication
     Route: 047
  2. REFRESH RELIEVA [Suspect]
     Active Substance: CARBOXYMETHYLCELLULOSE SODIUM\GLYCERIN
     Indication: Eye irritation
     Route: 047

REACTIONS (4)
  - Cataract [Unknown]
  - Eye irritation [Unknown]
  - Visual impairment [Unknown]
  - Therapeutic product effect incomplete [Unknown]
